FAERS Safety Report 5586522-9 (Version None)
Quarter: 2007Q4

REPORT INFORMATION
  Report Type: 
  Country: None (occurrence: None)
  Receive Date: 20071205
  Receipt Date: 20070117
  Transmission Date: 20080405
  Serious: Yes (Other)
  Sender: FDA-Public Use
  Company Number: HQWYE206123JAN07

PATIENT
  Age: 37 Year
  Sex: Female
  Weight: 59.93 kg

DRUGS (3)
  1. EFFEXOR XR [Suspect]
     Indication: ANXIETY
     Dosage: 75 MG 1X PER 1 DAY, ORAL
     Route: 048
     Dates: start: 20061011, end: 20061101
  2. EFFEXOR XR [Suspect]
     Indication: MAJOR DEPRESSION
     Dosage: 75 MG 1X PER 1 DAY, ORAL
     Route: 048
     Dates: start: 20061011, end: 20061101
  3. ALPRAZOLAM [Concomitant]

REACTIONS (2)
  - HEADACHE [None]
  - MOUTH INJURY [None]
